FAERS Safety Report 13870412 (Version 1)
Quarter: 2017Q3

REPORT INFORMATION
  Report Type: Spontaneous
  Country: US (occurrence: US)
  Receive Date: 20170815
  Receipt Date: 20170815
  Transmission Date: 20171127
  Serious: No
  Sender: FDA-Public Use
  Company Number: US-009507513-1708USA006408

PATIENT
  Age: 22 Year
  Sex: Female

DRUGS (1)
  1. NEXPLANON [Suspect]
     Active Substance: ETONOGESTREL
     Indication: INTRA-UTERINE CONTRACEPTIVE DEVICE INSERTION
     Dosage: 68 MG, INSERTED ONE TIME
     Route: 059
     Dates: start: 20150428, end: 20160823

REACTIONS (2)
  - Vaginal haemorrhage [Unknown]
  - Product use in unapproved indication [Unknown]

NARRATIVE: CASE EVENT DATE: 20150428
